FAERS Safety Report 23131900 (Version 1)
Quarter: 2023Q4

REPORT INFORMATION
  Report Type: Report from Study
  Country: CO (occurrence: CO)
  Receive Date: 20231101
  Receipt Date: 20231101
  Transmission Date: 20240110
  Serious: Yes (Other)
  Sender: FDA-Public Use
  Company Number: CO-JNJFOC-20231069774

PATIENT
  Age: 54 Year
  Sex: Male
  Weight: 55 kg

DRUGS (1)
  1. IMBRUVICA [Suspect]
     Active Substance: IBRUTINIB
     Indication: Mantle cell lymphoma
     Route: 048
     Dates: start: 20221112, end: 20231017

REACTIONS (2)
  - Cardiac pacemaker insertion [Unknown]
  - Pyrexia [Unknown]

NARRATIVE: CASE EVENT DATE: 20231019
